FAERS Safety Report 6851382-2 (Version None)
Quarter: 2010Q3

REPORT INFORMATION
  Report Type: 
  Country: None (occurrence: None)
  Receive Date: 20100717
  Receipt Date: 20080116
  Transmission Date: 20110219
  Serious: No
  Sender: FDA-Public Use
  Company Number: US-PFIZER INC-2008005173

PATIENT
  Sex: Female
  Weight: 81.818 kg

DRUGS (14)
  1. CHANTIX [Suspect]
     Indication: SMOKING CESSATION THERAPY
     Dates: start: 20071231
  2. ENALAPRIL MALEATE [Concomitant]
  3. DIAZEPAM [Concomitant]
  4. VALIUM [Concomitant]
  5. PRAZOSIN [Concomitant]
  6. MULTI-VITAMINS [Concomitant]
  7. VITAMIN B [Concomitant]
  8. VITAMIN C [Concomitant]
  9. VITAMIN D [Concomitant]
  10. VITAMIN E [Concomitant]
  11. HYDROCODONE [Concomitant]
  12. AVANDIA [Concomitant]
  13. ACETYLSALICYLIC ACID [Concomitant]
  14. ESTRADIOL [Concomitant]

REACTIONS (3)
  - ABDOMINAL DISCOMFORT [None]
  - ABNORMAL DREAMS [None]
  - MIDDLE INSOMNIA [None]
